FAERS Safety Report 14804566 (Version 1)
Quarter: 2018Q2

REPORT INFORMATION
  Report Type: Spontaneous
  Country: US (occurrence: US)
  Receive Date: 20180425
  Receipt Date: 20180425
  Transmission Date: 20180711
  Serious: Yes (Other)
  Sender: FDA-Public Use
  Company Number: US-ASTELLAS-2018US019240

PATIENT
  Age: 13 Year
  Sex: Male

DRUGS (3)
  1. TACROLIMUS. [Suspect]
     Active Substance: TACROLIMUS
     Indication: RENAL AND LIVER TRANSPLANT
     Dosage: UNK, UNKNOWN FREQ.
     Route: 065
  2. SIROLIMUS. [Concomitant]
     Active Substance: SIROLIMUS
     Indication: RENAL AND LIVER TRANSPLANT
     Dosage: UNK UNK, UNKNOWN FREQ.
     Route: 065
  3. DACLIZUMAB [Concomitant]
     Active Substance: DACLIZUMAB
     Indication: RENAL AND LIVER TRANSPLANT
     Dosage: UNK UNK, UNKNOWN FREQ.
     Route: 065

REACTIONS (6)
  - Off label use [Unknown]
  - Renal tubular necrosis [Unknown]
  - Anuria [Unknown]
  - Liver transplant rejection [Unknown]
  - Treatment noncompliance [Unknown]
  - Transplant dysfunction [Unknown]
